FAERS Safety Report 8760532 (Version 1)
Quarter: 2012Q4

REPORT INFORMATION
  Report Type: Spontaneous
  Country: US (occurrence: None)
  Receive Date: 20120829
  Receipt Date: 20120829
  Transmission Date: 20130627
  Serious: Yes (Life-Threatening, Hospitalization)
  Sender: FDA-Public Use
  Company Number: None

PATIENT
  Age: 62 Year
  Sex: Male
  Weight: 150 kg

DRUGS (1)
  1. NAPROXEN [Suspect]
     Indication: PAIN
     Dates: start: 20120622, end: 20120810

REACTIONS (4)
  - Renal failure acute [None]
  - Cardiac failure congestive [None]
  - Condition aggravated [None]
  - Haemodialysis [None]
